FAERS Safety Report 23295526 (Version 1)
Quarter: 2023Q4

REPORT INFORMATION
  Report Type: Spontaneous
  Country: US (occurrence: US)
  Receive Date: 20231214
  Receipt Date: 20231214
  Transmission Date: 20240109
  Serious: No
  Sender: FDA-Public Use
  Company Number: US-ALVOGEN-2023091695

PATIENT
  Sex: Male

DRUGS (7)
  1. FENTANYL [Suspect]
     Active Substance: FENTANYL\FENTANYL CITRATE
     Indication: Pain
     Dosage: EXPIRATION DATE: UU-MAR-2026?STRENGTH: 75 MCG/HR?MANUFACTURING DATE: 14-MAR-2023
     Dates: start: 20230501
  2. LISINOPRIL [Concomitant]
     Active Substance: LISINOPRIL
     Indication: Hypertension
  3. ACTOS [Concomitant]
     Active Substance: PIOGLITAZONE HYDROCHLORIDE
     Indication: Diabetes mellitus
  4. PANTOPRAZOLE [Concomitant]
     Active Substance: PANTOPRAZOLE
     Indication: Gastrooesophageal reflux disease
  5. AMITIZA [Concomitant]
     Active Substance: LUBIPROSTONE
     Indication: Gastrointestinal motility disorder
  6. PRAVASTATIN [Concomitant]
     Active Substance: PRAVASTATIN
     Indication: Blood cholesterol increased
  7. TRAMADOL [Concomitant]
     Active Substance: TRAMADOL\TRAMADOL HYDROCHLORIDE
     Indication: Pain

REACTIONS (9)
  - Salivary hypersecretion [Unknown]
  - Feeling cold [Unknown]
  - Tremor [Unknown]
  - Anxiety [Unknown]
  - Hyperhidrosis [Unknown]
  - Malaise [Unknown]
  - Drug effect less than expected [Unknown]
  - Device delivery system issue [Unknown]
  - Device malfunction [Unknown]
